FAERS Safety Report 5744323-2 (Version None)
Quarter: 2008Q2

REPORT INFORMATION
  Report Type: 
  Country: None (occurrence: None)
  Receive Date: 20080520
  Receipt Date: 20080514
  Transmission Date: 20081010
  Serious: Yes (Hospitalization, Other)
  Sender: FDA-Public Use
  Company Number: US-ALLERGAN-0805825US

PATIENT
  Age: 45 Year
  Sex: Female

DRUGS (1)
  1. BOTOX COSMETIC [Suspect]
     Indication: SKIN WRINKLING
     Dosage: 14 UNITS, SINGLE
     Route: 030

REACTIONS (6)
  - DYSTONIA [None]
  - HEADACHE [None]
  - MUSCLE STRAIN [None]
  - SWOLLEN TONGUE [None]
  - TRISMUS [None]
  - VOMITING [None]
